FAERS Safety Report 8921057 (Version 1)
Quarter: 2012Q4

REPORT INFORMATION
  Report Type: 
  Country: US (occurrence: US)
  Receive Date: 20121121
  Receipt Date: 20121121
  Transmission Date: 20130627
  Serious: Yes (Hospitalization, Other)
  Sender: FDA-Public Use
  Company Number: US-PFIZER INC-2012291072

PATIENT
  Age: 68 Year
  Sex: Female
  Weight: 54.42 kg

DRUGS (5)
  1. CHANTIX [Suspect]
     Indication: SMOKING CESSATION THERAPY
     Dosage: 0.5 mg, 2x/day
     Dates: start: 201208
  2. CHANTIX [Suspect]
     Dosage: 1 mg, 2x/day
     Dates: start: 20120902, end: 20121019
  3. VIIBRYD [Concomitant]
     Indication: RELAXATION THERAPY
     Dosage: 30 mg, daily
     Dates: start: 2012, end: 2012
  4. VIIBRYD [Concomitant]
     Dosage: 20 mg morning, 10 mg evening
     Dates: start: 20121010, end: 201210
  5. VIIBRYD [Concomitant]
     Dosage: 20 mg, daily
     Dates: start: 20121031

REACTIONS (9)
  - Back disorder [Unknown]
  - Aggression [Not Recovered/Not Resolved]
  - Confusional state [Not Recovered/Not Resolved]
  - Anxiety [Not Recovered/Not Resolved]
  - Panic disorder [Not Recovered/Not Resolved]
  - Feeling abnormal [Not Recovered/Not Resolved]
  - Crying [Not Recovered/Not Resolved]
  - Insomnia [Not Recovered/Not Resolved]
  - Muscle spasms [Unknown]
